FAERS Safety Report 11376977 (Version 1)
Quarter: 2015Q3

REPORT INFORMATION
  Report Type: Spontaneous
  Country: US (occurrence: US)
  Receive Date: 20150813
  Receipt Date: 20150813
  Transmission Date: 20151125
  Serious: No
  Sender: FDA-Public Use
  Company Number: US-PFIZER INC-2015261693

PATIENT
  Age: 52 Year
  Sex: Male
  Weight: 85.26 kg

DRUGS (6)
  1. NORCO [Concomitant]
     Active Substance: ACETAMINOPHEN\HYDROCODONE BITARTRATE
     Dosage: UNK (ACETAMINOPHEN 325MG /HYDROCODONE 10MG)
     Route: 048
  2. ELAVIL [Concomitant]
     Active Substance: AMITRIPTYLINE HYDROCHLORIDE
     Indication: PAIN
     Dosage: 10 MG, UNK
     Route: 048
  3. LYRICA [Suspect]
     Active Substance: PREGABALIN
     Dosage: 100 MG, 3X/DAY
     Route: 048
     Dates: start: 20120927
  4. TYLENOL [Concomitant]
     Active Substance: ACETAMINOPHEN
     Dosage: UNK
  5. LORTAB [Concomitant]
     Active Substance: ACETAMINOPHEN\HYDROCODONE BITARTRATE
     Indication: BACK PAIN
     Dosage: UNK (HYDROCODONE BITARTRATE: 10MG/ACETAMINOPHEN: 500MG)
     Dates: start: 20120504, end: 20150530
  6. DURAGESIC [Concomitant]
     Active Substance: FENTANYL
     Indication: BACK PAIN
     Dosage: UNK (25MCG/HR Q72)
     Dates: start: 20120504

REACTIONS (9)
  - Back pain [Unknown]
  - Anxiety [Unknown]
  - Joint range of motion decreased [Unknown]
  - Myofascial pain syndrome [Unknown]
  - Contusion [Unknown]
  - Myositis [Unknown]
  - Rash [Unknown]
  - Myalgia [Unknown]
  - Swelling [Unknown]
